FAERS Safety Report 9553845 (Version 1)
Quarter: 2013Q3

REPORT INFORMATION
  Report Type: Spontaneous
  Country: US (occurrence: None)
  Receive Date: 20130913
  Receipt Date: 20130913
  Transmission Date: 20140515
  Serious: Yes (Other)
  Sender: FDA-Public Use
  Company Number: 1000045503

PATIENT
  Age: 65 Year
  Sex: Female
  Weight: 58.97 kg

DRUGS (15)
  1. DALIRESP (ROFLUMILAST) (500 MICROGRAM, TABLETS) [Suspect]
     Indication: CHRONIC OBSTRUCTIVE PULMONARY DISEASE
     Dosage: 500 MCG, 1 IN 1 D, ORAL
     Route: 048
     Dates: start: 20130523, end: 20130528
  2. ALPRAZOLAM [Concomitant]
  3. ALBUTEROL SULFATE [Concomitant]
  4. BISOPROLOL-HYDROCHLOROTHIAZIDE [Concomitant]
  5. LISINOPRIL [Concomitant]
  6. NEXIUM (ESOMEPRAZOLE) [Concomitant]
  7. CYMBALTA (DULOXETINE HYDROCHLORIDE) [Concomitant]
  8. VIT D (ERGOCALCIFEROL) [Concomitant]
  9. CRESTOR (ROSUVASTATIN CALCIUM) [Concomitant]
  10. NORVASC (AMLODIPINE BESILATE) [Concomitant]
  11. ASPIRIN (ACETYLSALICYLIC ACID) [Concomitant]
  12. NICOTROL (NICOTINE) [Concomitant]
  13. SINGULAIR [Concomitant]
  14. DULERA [Concomitant]
  15. LEVOCETIRIZINE [Concomitant]

REACTIONS (1)
  - Suicidal ideation [None]
